FAERS Safety Report 8913949 (Version 1)
Quarter: 2012Q4

REPORT INFORMATION
  Report Type: 
  Country: DE (occurrence: DE)
  Receive Date: 20121116
  Receipt Date: 20121116
  Transmission Date: 20130627
  Serious: Yes (Hospitalization)
  Sender: FDA-Public Use
  Company Number: DE-BIOGENIDEC-2012BI053458

PATIENT
  Age: 30 Year
  Sex: Female
  Weight: 55 kg

DRUGS (1)
  1. AVONEX [Suspect]
     Indication: MULTIPLE SCLEROSIS
     Dates: start: 20120501

REACTIONS (4)
  - Epilepsy [Recovered/Resolved]
  - Influenza like illness [Recovered/Resolved]
  - Feeling cold [Recovered/Resolved]
  - Multiple sclerosis relapse [Recovered/Resolved]
